FAERS Safety Report 11230304 (Version 2)
Quarter: 2015Q3

REPORT INFORMATION
  Report Type: Report from Study
  Country: CZ (occurrence: CZ)
  Receive Date: 20150701
  Receipt Date: 20150706
  Transmission Date: 20151125
  Serious: Yes (Death, Hospitalization)
  Sender: FDA-Public Use
  Company Number: PHHY2015CZ078229

PATIENT
  Sex: Female

DRUGS (1)
  1. STI571 [Suspect]
     Active Substance: IMATINIB MESYLATE
     Indication: CHRONIC MYELOID LEUKAEMIA
     Dosage: UNK
     Route: 065
     Dates: start: 20090202, end: 20100913

REACTIONS (10)
  - Chronic myeloid leukaemia [Fatal]
  - Drug dependence [Unknown]
  - Pleural effusion [Unknown]
  - Pyrexia [Unknown]
  - Dyspnoea [Not Recovered/Not Resolved]
  - General physical health deterioration [Unknown]
  - Blast crisis in myelogenous leukaemia [Fatal]
  - Suicidal ideation [Unknown]
  - Altered state of consciousness [Unknown]
  - Pericardial effusion [Unknown]
